FAERS Safety Report 9742337 (Version 1)
Quarter: 2013Q4

REPORT INFORMATION
  Report Type: Spontaneous
  Country: US (occurrence: US)
  Receive Date: 20131210
  Receipt Date: 20131210
  Transmission Date: 20140711
  Serious: No
  Sender: FDA-Public Use
  Company Number: US-ENDO PHARMACEUTICALS INC.-SPIR20110019

PATIENT
  Age: 42 Year
  Sex: Female
  Weight: 47.67 kg

DRUGS (1)
  1. SPIRONOLACTONE TABLETS 50MG [Suspect]
     Indication: HORMONE REPLACEMENT THERAPY
     Dosage: 50 MG
     Route: 048
     Dates: start: 2010, end: 201111

REACTIONS (1)
  - Hypersensitivity [Recovered/Resolved]
